FAERS Safety Report 6280876-6 (Version None)
Quarter: 2009Q3

REPORT INFORMATION
  Report Type: 
  Country: None (occurrence: None)
  Receive Date: 20090724
  Receipt Date: 20090302
  Transmission Date: 20100115
  Serious: No
  Sender: FDA-Public Use
  Company Number: A0771128A

PATIENT
  Sex: Female

DRUGS (5)
  1. AVANDIA [Suspect]
     Dosage: 4MG PER DAY
     Route: 048
     Dates: start: 20020101
  2. GLUCOMIDE [Concomitant]
  3. BENICAR [Concomitant]
  4. TOPAMAX [Concomitant]
  5. LIPITOR [Concomitant]

REACTIONS (1)
  - SWELLING [None]
